FAERS Safety Report 7749438-5 (Version None)
Quarter: 2011Q3

REPORT INFORMATION
  Report Type: 
  Country: None (occurrence: None)
  Receive Date: 20110907
  Receipt Date: 20110831
  Transmission Date: 20111222
  Serious: Yes (Hospitalization)
  Sender: FDA-Public Use
  Company Number: 2011SP034080

PATIENT
  Age: 27 Year
  Sex: Female

DRUGS (3)
  1. DEXAMETHASONE [Concomitant]
  2. TEMODAL [Suspect]
     Indication: CHEMOTHERAPY
     Dosage: 120 MG;QD;PO
     Route: 048
     Dates: start: 20110331, end: 20110509
  3. TRIMETHOPRIM + SULFAMETHOXAZOLE [Suspect]
     Indication: INFECTION PROPHYLAXIS
     Dosage: 1 DF;TIW;PO
     Route: 048
     Dates: start: 20110301, end: 20110501

REACTIONS (12)
  - EPISTAXIS [None]
  - HAEMOGLOBIN DECREASED [None]
  - PYREXIA [None]
  - SINUSITIS [None]
  - THROMBOCYTOPENIA [None]
  - BONE MARROW FAILURE [None]
  - BONE MARROW TOXICITY [None]
  - APLASTIC ANAEMIA [None]
  - PETECHIAE [None]
  - APLASIA [None]
  - HUMAN HERPESVIRUS 6 INFECTION [None]
  - PERIODONTITIS [None]
